FAERS Safety Report 18243779 (Version 1)
Quarter: 2020Q3

REPORT INFORMATION
  Report Type: Spontaneous
  Country: FR (occurrence: FR)
  Receive Date: 20200908
  Receipt Date: 20200908
  Transmission Date: 20201103
  Serious: Yes (Other)
  Sender: FDA-Public Use
  Company Number: FR-OTSUKA-2020_021397

PATIENT
  Age: 45 Year
  Sex: Male

DRUGS (4)
  1. LEPONEX [Interacting]
     Active Substance: CLOZAPINE
     Indication: SCHIZOPHRENIA
     Dosage: 250 MG, QD (ONCE A DAY IN THE EVENING)
     Route: 065
     Dates: start: 2005, end: 2016
  2. LEPONEX [Interacting]
     Active Substance: CLOZAPINE
     Dosage: 550 MG, QD (INCREASED EACH YEAR, FROM 250 MG (ONE INTAKE IN EVENING) TO REACH 550MG (ONE IN EVENING)
     Route: 065
  3. ABILIFY [Suspect]
     Active Substance: ARIPIPRAZOLE
     Indication: SCHIZOPHRENIA
     Dosage: UNK
     Route: 065
     Dates: start: 2016
  4. LEPONEX [Interacting]
     Active Substance: CLOZAPINE
     Dosage: 250 MG, QD (INCREASED EACH YEAR, FROM 250 MG (ONE INTAKE IN EVENING) TO REACH 550MG (ONE IN EVENING)
     Route: 065
     Dates: start: 2016

REACTIONS (3)
  - Hallucination, auditory [Unknown]
  - Food interaction [Unknown]
  - Drug ineffective [Unknown]
